FAERS Safety Report 16056435 (Version 1)
Quarter: 2019Q1

REPORT INFORMATION
  Report Type: Report from Study
  Country: JP (occurrence: JP)
  Receive Date: 20190311
  Receipt Date: 20190311
  Transmission Date: 20190418
  Serious: Yes (Other)
  Sender: FDA-Public Use
  Company Number: JP-ROCHE-2280046

PATIENT
  Age: 69 Year
  Sex: Male
  Weight: 63 kg

DRUGS (5)
  1. NAFTOPIDIL OD [Suspect]
     Active Substance: NAFTOPIDIL
     Indication: PRODUCT USED FOR UNKNOWN INDICATION
     Route: 048
  2. ATEZOLIZUMAB. [Suspect]
     Active Substance: ATEZOLIZUMAB
     Indication: NON-SMALL CELL LUNG CANCER
  3. FEXOFENADINE HYDROCHLORIDE. [Suspect]
     Active Substance: FEXOFENADINE HYDROCHLORIDE
     Indication: PRODUCT USED FOR UNKNOWN INDICATION
     Route: 048
  4. ATEZOLIZUMAB. [Suspect]
     Active Substance: ATEZOLIZUMAB
     Indication: NON-SMALL CELL LUNG CANCER
     Dosage: LAST DOSE 14/AUG/2018
     Route: 041
     Dates: start: 20180724
  5. NEXIUM [Suspect]
     Active Substance: ESOMEPRAZOLE MAGNESIUM
     Indication: PRODUCT USED FOR UNKNOWN INDICATION
     Route: 048

REACTIONS (1)
  - Pulmonary fibrosis [Recovering/Resolving]

NARRATIVE: CASE EVENT DATE: 20180904
